FAERS Safety Report 4610189-7 (Version None)
Quarter: 2005Q1

REPORT INFORMATION
  Report Type: 
  Country: None (occurrence: None)
  Receive Date: 20050314
  Receipt Date: 20050301
  Transmission Date: 20050727
  Serious: Yes (Other)
  Sender: FDA-Public Use
  Company Number: HQWYE892408MAR05

PATIENT

DRUGS (2)
  1. RAPAMUNE [Suspect]
     Indication: RENAL IMPAIRMENT
     Dosage: SEE IMAGE
  2. PREDNISOLONE [Concomitant]

REACTIONS (1)
  - EJECTION FRACTION DECREASED [None]
